FAERS Safety Report 4357834-1 (Version None)
Quarter: 2004Q2

REPORT INFORMATION
  Report Type: 
  Country: None (occurrence: None)
  Receive Date: 20040512
  Receipt Date: 20040427
  Transmission Date: 20050107
  Serious: Yes (Hospitalization)
  Sender: FDA-Public Use
  Company Number: US-JNJFOC-20040405954

PATIENT
  Age: 60 Year
  Sex: Male
  Weight: 90.7194 kg

DRUGS (15)
  1. INFLIXIMAB (INFLIXIMAB, RECOMBINANT) LYOPHILIZED POWDER [Suspect]
     Indication: RHEUMATOID ARTHRITIS
     Route: 042
     Dates: start: 20020411
  2. METHOTREXATE [Concomitant]
  3. CELEBREX [Concomitant]
  4. FOLIC ACID [Concomitant]
  5. RANITIDINE [Concomitant]
  6. TOPROL (METOPROLOL SUCCINATE) [Concomitant]
  7. PRINIVIL [Concomitant]
  8. LIPITOR [Concomitant]
  9. ISOSORBIDE (ISOSORBIDE) [Concomitant]
  10. ASPIRIN [Concomitant]
  11. MULTIVITAMIN (MULTIVITAMINS) [Concomitant]
  12. CALCIUM (CALCIUM) [Concomitant]
  13. NITROSTAT [Concomitant]
  14. MAGNESIUM (MAGNESIUM) [Concomitant]
  15. ZINC (ZINC) [Concomitant]

REACTIONS (2)
  - CARDIAC STRESS TEST ABNORMAL [None]
  - CORONARY ARTERY STENOSIS [None]
